FAERS Safety Report 9402760 (Version 1)
Quarter: 2013Q3

REPORT INFORMATION
  Report Type: Spontaneous
  Country: US (occurrence: None)
  Receive Date: 20130715
  Receipt Date: 20130715
  Transmission Date: 20140515
  Serious: Yes (Death)
  Sender: FDA-Public Use
  Company Number: None

PATIENT
  Age: 73 Year
  Sex: Male

DRUGS (1)
  1. SUTENT [Suspect]
     Dosage: 25-50 MG, DAILY, BY MOUTH
     Route: 048
     Dates: start: 20120911, end: 20130711

REACTIONS (1)
  - Death [None]
